FAERS Safety Report 8300353-8 (Version None)
Quarter: 2012Q2

REPORT INFORMATION
  Report Type: 
  Country: None (occurrence: None)
  Receive Date: 20120420
  Receipt Date: 20120412
  Transmission Date: 20120825
  Serious: Yes (Disabling, Other)
  Sender: FDA-Public Use
  Company Number: JP-PFIZER INC-2012081307

PATIENT
  Age: 79 Year
  Sex: Male
  Weight: 54 kg

DRUGS (10)
  1. ZOSYN [Suspect]
     Indication: PNEUMONIA
     Dosage: 4.5 G, 3X/DAY
     Route: 041
     Dates: start: 20120227, end: 20120302
  2. GLYBURIDE [Concomitant]
     Indication: DIABETES MELLITUS
     Dosage: 2.5 MG/DAY
     Route: 048
     Dates: end: 20120302
  3. LYRICA [Concomitant]
     Indication: ARTHRALGIA
     Dosage: 75 MG/DAY
     Route: 048
     Dates: start: 20120201, end: 20120302
  4. ACTOS [Concomitant]
     Indication: DIABETES MELLITUS
     Dosage: 7.5 MG/DAY
     Route: 048
  5. ALFAROL [Concomitant]
     Indication: OSTEOPOROSIS
     Dosage: 0.5 UG/DAY
     Route: 048
  6. METFORMIN HCL [Concomitant]
     Indication: DIABETES MELLITUS
     Dosage: 750 MG/DAY
     Route: 048
  7. SIGMART [Concomitant]
     Indication: ANGINA PECTORIS
     Dosage: 15 MG/DAY
     Route: 048
  8. MICARDIS [Concomitant]
     Indication: HYPERTENSION
     Dosage: 40 MG/DAY
     Route: 048
  9. OMEPRAZOLE [Concomitant]
     Indication: GASTROOESOPHAGEAL REFLUX DISEASE
     Dosage: 20 MG/DAY
     Route: 048
  10. NORVASC [Concomitant]
     Indication: HYPERTENSION
     Dosage: 5 MG/DAY
     Route: 048

REACTIONS (1)
  - RENAL FAILURE ACUTE [None]
